FAERS Safety Report 8501396-1 (Version None)
Quarter: 2012Q3

REPORT INFORMATION
  Report Type: 
  Country: None (occurrence: None)
  Receive Date: 20120710
  Receipt Date: 20120704
  Transmission Date: 20120928
  Serious: Yes (Other)
  Sender: FDA-Public Use
  Company Number: KR-MILLENNIUM PHARMACEUTICALS, INC.-2012-04752

PATIENT

DRUGS (3)
  1. PREDNISOLONE [Concomitant]
     Indication: MULTIPLE MYELOMA
     Dosage: 60 UNK, UNK
  2. VELCADE [Suspect]
     Indication: MULTIPLE MYELOMA
     Dosage: 1.3 MG/M2, UNK
  3. MELPHALAN HYDROCHLORIDE [Concomitant]
     Indication: MULTIPLE MYELOMA
     Dosage: 4.5 MG/M2, UNK

REACTIONS (6)
  - PAROTITIS [None]
  - BACTERAEMIA [None]
  - PYREXIA [None]
  - EPIGLOTTITIS [None]
  - NEUTROPENIA [None]
  - PSEUDOMONAS INFECTION [None]
